FAERS Safety Report 19991618 (Version 3)
Quarter: 2021Q4

REPORT INFORMATION
  Report Type: Report from Study
  Country: BR (occurrence: BR)
  Receive Date: 20211025
  Receipt Date: 20211116
  Transmission Date: 20220303
  Serious: Yes (Other)
  Sender: FDA-Public Use
  Company Number: ALC2021BR005813

PATIENT
  Age: 79 Year
  Sex: Male

DRUGS (2)
  1. SYSTANE EYEDROPS [Suspect]
     Active Substance: POLYETHYLENE GLYCOL 400\PROPYLENE GLYCOL
     Indication: Eye lubrication therapy
     Dosage: UNK
     Route: 065
  2. DEXAMETHASONE SODIUM PHOSPHATE\MOXIFLOXACIN HYDROCHLORIDE [Suspect]
     Active Substance: DEXAMETHASONE SODIUM PHOSPHATE\MOXIFLOXACIN HYDROCHLORIDE
     Indication: Antibiotic therapy
     Dosage: UNK, TID
     Route: 065

REACTIONS (10)
  - Blindness [Recovered/Resolved]
  - Visual impairment [Recovered/Resolved]
  - Reading disorder [Recovered/Resolved]
  - Retinal disorder [Unknown]
  - Photophobia [Unknown]
  - Eye pain [Recovered/Resolved]
  - Vision blurred [Recovered/Resolved]
  - Ear disorder [Recovered/Resolved]
  - Visual impairment [Not Recovered/Not Resolved]
  - Eye disorder [Recovered/Resolved]

NARRATIVE: CASE EVENT DATE: 20211002
